FAERS Safety Report 15751916 (Version 4)
Quarter: 2019Q1

REPORT INFORMATION
  Report Type: Report from Study
  Country: US (occurrence: US)
  Receive Date: 20181221
  Receipt Date: 20190222
  Transmission Date: 20190417
  Serious: Yes (Other)
  Sender: FDA-Public Use
  Company Number: PHEH2018US053124

PATIENT
  Sex: Male

DRUGS (1)
  1. ENTRESTO [Suspect]
     Active Substance: SACUBITRIL\VALSARTAN
     Indication: PRODUCT USED FOR UNKNOWN INDICATION
     Dosage: UNK, BID
     Route: 048

REACTIONS (10)
  - Cardiac disorder [Unknown]
  - Influenza [Unknown]
  - Dementia [Unknown]
  - Memory impairment [Unknown]
  - Amnesia [Unknown]
  - Cough [Unknown]
  - Myalgia [Unknown]
  - Withdrawal syndrome [Unknown]
  - Pain in extremity [Unknown]
  - Insomnia [Unknown]
